FAERS Safety Report 7062010-8 (Version None)
Quarter: 2010Q4

REPORT INFORMATION
  Report Type: 
  Country: None (occurrence: None)
  Receive Date: 20101026
  Receipt Date: 20101020
  Transmission Date: 20110411
  Serious: Yes (Hospitalization)
  Sender: FDA-Public Use
  Company Number: A0736745A

PATIENT
  Age: 63 Year
  Sex: Female
  Weight: 115.9 kg

DRUGS (12)
  1. AVANDIA [Suspect]
     Indication: DIABETES MELLITUS
     Dosage: 8MG PER DAY
     Route: 048
     Dates: start: 20040419, end: 20070501
  2. AVANDAMET [Suspect]
     Route: 048
     Dates: start: 20070507
  3. GLUCOPHAGE [Concomitant]
  4. METFORMIN [Concomitant]
  5. ATENOLOL [Concomitant]
  6. METOPROLOL [Concomitant]
  7. ENALAPRIL MALEATE [Concomitant]
     Dosage: 20MG PER DAY
  8. PLAVIX [Concomitant]
     Dosage: 75MG PER DAY
  9. ASPIRIN [Concomitant]
     Dosage: 325MG PER DAY
  10. LIPITOR [Concomitant]
     Dosage: 80MG PER DAY
  11. COMPAZINE [Concomitant]
     Dosage: 10MG AS REQUIRED
  12. ULTRAM [Concomitant]
     Dosage: 60MG AS REQUIRED

REACTIONS (5)
  - ACUTE CORONARY SYNDROME [None]
  - CHEST PAIN [None]
  - CORONARY ARTERY DISEASE [None]
  - HEART INJURY [None]
  - MYOCARDIAL INFARCTION [None]
